FAERS Safety Report 25806310 (Version 1)
Quarter: 2025Q3

REPORT INFORMATION
  Report Type: Report from Study
  Country: US (occurrence: US)
  Receive Date: 20250916
  Receipt Date: 20250916
  Transmission Date: 20251020
  Serious: Yes (Other)
  Sender: RECORDATI
  Company Number: US-ORPHANEU-2025006481

PATIENT
  Age: 47 Year
  Sex: Female
  Weight: 77.098 kg

DRUGS (11)
  1. ISTURISA [Suspect]
     Active Substance: OSILODROSTAT PHOSPHATE
     Indication: Cushing^s syndrome
     Dosage: 5 MG, BID
     Route: 048
     Dates: start: 20250716
  2. DOXYCYCLINE HYCLATE [Concomitant]
     Active Substance: DOXYCYCLINE HYCLATE
     Indication: Product used for unknown indication
     Dosage: 100 MG, BID (TABLET)
     Route: 048
     Dates: start: 20231108
  3. FAMOTIDINE [Concomitant]
     Active Substance: FAMOTIDINE
     Indication: Product used for unknown indication
     Dosage: 40 MG, BID (TABLET)
     Route: 048
     Dates: start: 20231108
  4. KETOCONAZOLE [Concomitant]
     Active Substance: KETOCONAZOLE
     Indication: Product used for unknown indication
     Dosage: 200 MG, BID (TABLET)
     Route: 048
     Dates: start: 20231108
  5. METRONIDAZOLE [Concomitant]
     Active Substance: METRONIDAZOLE
     Indication: Product used for unknown indication
     Dosage: 500 MG, BID (TABLET)
     Route: 048
     Dates: start: 20231108
  6. NUVARING [Concomitant]
     Active Substance: ETHINYL ESTRADIOL\ETONOGESTREL
     Indication: Product used for unknown indication
     Dosage: 0.12-0.015 MG, QM (VAGINAL RING)
     Route: 067
     Dates: start: 20231108
  7. OMEGA-3-ACID ETHYL ESTERS [Concomitant]
     Active Substance: OMEGA-3-ACID ETHYL ESTERS
     Indication: Product used for unknown indication
     Route: 048
     Dates: start: 20231108
  8. VALACYCLOVIR HYDROCHLORIDE [Concomitant]
     Active Substance: VALACYCLOVIR HYDROCHLORIDE
     Indication: Product used for unknown indication
     Dosage: 500 MG, QD, TABLET
     Route: 048
     Dates: start: 20231108
  9. VITAMIN D3 [Concomitant]
     Active Substance: CHOLECALCIFEROL
     Indication: Product used for unknown indication
     Dosage: 25 MICROGRAM, QD (TABLET)
     Route: 048
     Dates: start: 20231108
  10. B complex + vitamin c [Concomitant]
     Indication: Product used for unknown indication
     Dosage: 1 DOSAGE FORM (TABLET), QD
     Route: 048
     Dates: start: 20231108
  11. 5 mthf [Concomitant]
     Indication: Product used for unknown indication
     Dosage: 170 MICROGRAM, QD, CAPSULE)
     Route: 048
     Dates: start: 20231108

REACTIONS (1)
  - Hypothyroidism [Unknown]

NARRATIVE: CASE EVENT DATE: 20250825
